FAERS Safety Report 5794618-1 (Version None)
Quarter: 2008Q2

REPORT INFORMATION
  Report Type: 
  Country: None (occurrence: None)
  Receive Date: 20080627
  Receipt Date: 20080627
  Transmission Date: 20081010
  Serious: Yes (Hospitalization)
  Sender: FDA-Public Use
  Company Number: None

PATIENT
  Sex: Female
  Weight: 52.6173 kg

DRUGS (8)
  1. ASPIRIN [Suspect]
     Indication: CARDIOVASCULAR DISORDER
     Dosage: 325 MG PO DAILY  PRIOR TO ADMISSION
     Route: 048
  2. LIPITOR [Concomitant]
  3. NASONEX [Concomitant]
  4. AMBIEN [Concomitant]
  5. FOSAMAX [Concomitant]
  6. OSCAL WITH D [Concomitant]
  7. ZEBETA [Concomitant]
  8. PREDNISONE TAB [Concomitant]

REACTIONS (2)
  - ANAEMIA [None]
  - GASTROINTESTINAL HAEMORRHAGE [None]
